FAERS Safety Report 17998359 (Version 2)
Quarter: 2020Q3

REPORT INFORMATION
  Report Type: Other
  Country: FR (occurrence: FR)
  Receive Date: 20200709
  Receipt Date: 20200710
  Transmission Date: 20201103
  Serious: Yes (Other)
  Sender: FDA-Public Use
  Company Number: FR-TAIHO ONCOLOGY  INC-IM-2020-00529

PATIENT
  Age: 81 Year
  Sex: Male
  Weight: 83 kg

DRUGS (2)
  1. LONSURF [Suspect]
     Active Substance: TIPIRACIL HYDROCHLORIDE\TRIFLURIDINE
     Indication: COLORECTAL ADENOCARCINOMA
     Dosage: 120 MG
     Route: 048
     Dates: start: 20200224, end: 20200528
  2. LONSURF [Suspect]
     Active Substance: TIPIRACIL HYDROCHLORIDE\TRIFLURIDINE
     Indication: OFF LABEL USE

REACTIONS (1)
  - Chest pain [Recovered/Resolved]

NARRATIVE: CASE EVENT DATE: 20200528
